FAERS Safety Report 8030451-8 (Version None)
Quarter: 2012Q1

REPORT INFORMATION
  Report Type: 
  Country: None (occurrence: None)
  Receive Date: 20120109
  Receipt Date: 20120105
  Transmission Date: 20120608
  Serious: Yes (Death, Other)
  Sender: FDA-Public Use
  Company Number: PHHY2012IT000977

PATIENT
  Age: 23 Year
  Sex: Female

DRUGS (7)
  1. CAPECITABINE [Concomitant]
     Dosage: 1000 MG/M2, BID
  2. OXALIPLATIN [Concomitant]
     Dosage: 85 MG/M2, UNK
  3. LEUCOVORIN CALCIUM [Concomitant]
     Dosage: 100 MG/M2, UNK
  4. ZOLEDRONIC ACID [Suspect]
     Indication: METASTASES TO BONE
     Dosage: 4 MG, EVERY 4 WEEKS
  5. BEVACIZUMAB [Concomitant]
     Dosage: 5 MG/KG, EVERY 2 WEEKS
  6. FLUOROURACIL [Concomitant]
     Dosage: 400 MG/M2, UNK
     Route: 040
  7. FOLFOX-4 [Concomitant]

REACTIONS (7)
  - CONVULSION [None]
  - ATAXIA [None]
  - SUDDEN DEATH [None]
  - NEOPLASM PROGRESSION [None]
  - METASTASES TO CENTRAL NERVOUS SYSTEM [None]
  - NEOPLASM MALIGNANT [None]
  - GENERAL PHYSICAL HEALTH DETERIORATION [None]
